FAERS Safety Report 24779600 (Version 1)
Quarter: 2024Q4

REPORT INFORMATION
  Report Type: Spontaneous
  Country: RU (occurrence: RU)
  Receive Date: 20241226
  Receipt Date: 20241226
  Transmission Date: 20250114
  Serious: Yes (Hospitalization, Other)
  Sender: VERTEX
  Company Number: RU-VERTEX PHARMACEUTICALS-2024-019896

PATIENT
  Age: 6 Year
  Sex: Male
  Weight: 20 kg

DRUGS (9)
  1. TRIKAFTA [Suspect]
     Active Substance: ELEXACAFTOR\IVACAFTOR\TEZACAFTOR
     Indication: Cystic fibrosis
     Dosage: 50 MG ELEXA/ 25 MG TEZA/ 37.5 MG IVA 2 TABS EVERY MORN AND 75 MG IVA IN EVEVNING
     Route: 048
     Dates: start: 20240514, end: 20241022
  2. TRIKAFTA [Suspect]
     Active Substance: ELEXACAFTOR\IVACAFTOR\TEZACAFTOR
     Dosage: 2 TABLETS IN MORNING AND 1 TABLET IN EVENING
     Route: 048
     Dates: start: 20241022, end: 20241122
  3. TRIKAFTA [Suspect]
     Active Substance: ELEXACAFTOR\IVACAFTOR\TEZACAFTOR
     Dosage: 50 MG ELEXA/ 25 MG TEZA/ 37.5 MG IVA 2 TABS IN MORN AND 75 MG IVA IN EVE
     Route: 048
     Dates: start: 20241123, end: 20241210
  4. URSOMAX [Concomitant]
     Dosage: 250 MILLIGRAM, BID
     Route: 048
     Dates: start: 201708
  5. CREON [Concomitant]
     Active Substance: PANCRELIPASE AMYLASE\PANCRELIPASE LIPASE\PANCRELIPASE PROTEASE
     Dosage: 10000 (THREE TIMES A DAY)
     Route: 048
     Dates: start: 201708
  6. CREON [Concomitant]
     Active Substance: PANCRELIPASE AMYLASE\PANCRELIPASE LIPASE\PANCRELIPASE PROTEASE
     Dosage: 5000 U, 2 TIMES A DAY
     Route: 048
     Dates: start: 201708
  7. CREON [Concomitant]
     Active Substance: PANCRELIPASE AMYLASE\PANCRELIPASE LIPASE\PANCRELIPASE PROTEASE
     Dosage: 10000 UNIT/ DOSE
  8. TIGERASE [Concomitant]
     Dosage: 2.5 MILLILITER, ONCE DAILY
  9. URSODIOL [Concomitant]
     Active Substance: URSODIOL
     Dosage: 500 MILLIGRAM, ONCE A DAY

REACTIONS (15)
  - Vomiting [Recovered/Resolved]
  - Nausea [Recovered/Resolved]
  - Visual acuity reduced [Not Recovered/Not Resolved]
  - Retinal oedema [Not Recovered/Not Resolved]
  - Macular oedema [Not Recovered/Not Resolved]
  - Papilloedema [Not Recovered/Not Resolved]
  - Hospitalisation [Unknown]
  - Poisoning [Unknown]
  - Dyspepsia [Unknown]
  - Headache [Recovered/Resolved]
  - Decreased appetite [Recovered/Resolved]
  - Asthenia [Recovered/Resolved]
  - Weight decreased [Unknown]
  - Astigmatism [Unknown]
  - Nasal congestion [Recovered/Resolved]

NARRATIVE: CASE EVENT DATE: 20240801
